FAERS Safety Report 18470168 (Version 1)
Quarter: 2020Q4

REPORT INFORMATION
  Report Type: Spontaneous
  Country: US (occurrence: US)
  Receive Date: 20201105
  Receipt Date: 20201105
  Transmission Date: 20210114
  Serious: No
  Sender: FDA-Public Use
  Company Number: US-ELI_LILLY_AND_COMPANY-US202011002450

PATIENT
  Sex: Female

DRUGS (3)
  1. GALCANEZUMAB [Concomitant]
     Active Substance: GALCANEZUMAB
     Indication: MIGRAINE
     Dosage: 120 MG, MONTHLY (1/M)
     Route: 065
     Dates: start: 20200301
  2. PROVIGIL [Concomitant]
     Active Substance: MODAFINIL
     Indication: PRODUCT USED FOR UNKNOWN INDICATION
     Route: 065
  3. REYVOW [Suspect]
     Active Substance: LASMIDITAN
     Indication: MIGRAINE
     Dosage: 100 MG
     Route: 065
     Dates: start: 20201023, end: 20201023

REACTIONS (1)
  - Autoscopy [Recovered/Resolved]

NARRATIVE: CASE EVENT DATE: 20201023
